FAERS Safety Report 21764712 (Version 1)
Quarter: 2022Q4

REPORT INFORMATION
  Report Type: Spontaneous
  Country: ES (occurrence: ES)
  Receive Date: 20221222
  Receipt Date: 20221222
  Transmission Date: 20230113
  Serious: Yes (Other)
  Sender: FDA-Public Use
  Company Number: None

PATIENT
  Age: 19 Year
  Sex: Male
  Weight: 180 kg

DRUGS (3)
  1. FENTANYL [Suspect]
     Active Substance: FENTANYL
     Indication: General anaesthesia
     Dosage: 100 MG IV FOLLOWED BY 3.6 MG DOSE, DURATION : 1 DAYS
     Route: 042
     Dates: start: 20101026, end: 20101026
  2. PROPOFOL [Suspect]
     Active Substance: PROPOFOL
     Indication: General anaesthesia
     Dosage: PROPOFOL 0.1 MG/KG MIN IV OVER 100 MIN (1800 MG TOTAL), UNIT DOSE : 1800 MG, FREQUENCY TIME : 1 TOTA
     Route: 042
     Dates: start: 20101026, end: 20101026
  3. AMOXICILLIN + CLAVULANIC [Concomitant]
     Indication: Prophylaxis
     Dosage: AMOXICILLIN-CLAVULANIC ACID 1 G/8 H, OPERATING ROOM 10/26/2010: AMOXICILLIN-CLAVULANIC ACID 2 G IV,
     Route: 042
     Dates: start: 20101025, end: 20101101

REACTIONS (1)
  - Hepatitis [Recovering/Resolving]

NARRATIVE: CASE EVENT DATE: 20101026
